FAERS Safety Report 7540686-6 (Version None)
Quarter: 2011Q2

REPORT INFORMATION
  Report Type: 
  Country: None (occurrence: None)
  Receive Date: 20110610
  Receipt Date: 20110531
  Transmission Date: 20111010
  Serious: Yes (Other)
  Sender: FDA-Public Use
  Company Number: CA-AMGEN-CANSP2011018906

PATIENT
  Sex: Female
  Weight: 70 kg

DRUGS (4)
  1. NEULASTA [Suspect]
     Indication: CHEMOTHERAPY
     Dosage: 6 MG, UNK
     Route: 058
     Dates: start: 20110322, end: 20110526
  2. EPIRUBICIN [Concomitant]
  3. FLUOROURACIL [Concomitant]
  4. CYCLOPHOSPHAMIDE [Concomitant]

REACTIONS (5)
  - PHARYNGEAL OEDEMA [None]
  - CHOKING SENSATION [None]
  - MUSCULOSKELETAL PAIN [None]
  - MUCOSAL INFLAMMATION [None]
  - NECK PAIN [None]
